FAERS Safety Report 9326770 (Version 1)
Quarter: 2013Q2

REPORT INFORMATION
  Report Type: Spontaneous
  Country: US (occurrence: US)
  Receive Date: 20130604
  Receipt Date: 20130604
  Transmission Date: 20140414
  Serious: No
  Sender: FDA-Public Use
  Company Number: US-AMGEN-USASP2013035512

PATIENT
  Age: 66 Year
  Sex: Male

DRUGS (2)
  1. ENBREL [Suspect]
     Indication: RHEUMATOID ARTHRITIS
     Dosage: 50 MG, QWK
     Dates: start: 20130501
  2. PREDNISONE [Concomitant]
     Dosage: 10MG DAILY TITRATED DOWN
     Dates: end: 20130515

REACTIONS (1)
  - Pain in extremity [Not Recovered/Not Resolved]
